FAERS Safety Report 20143987 (Version 2)
Quarter: 2021Q4

REPORT INFORMATION
  Report Type: Spontaneous
  Country: US (occurrence: US)
  Receive Date: 20211203
  Receipt Date: 20211230
  Transmission Date: 20220303
  Serious: Yes (Other)
  Sender: FDA-Public Use
  Company Number: US-BAUSCH-BL-2021-038867

PATIENT
  Sex: Male

DRUGS (2)
  1. ZELAPAR [Suspect]
     Active Substance: SELEGILINE HYDROCHLORIDE
     Indication: Depression
     Dosage: AS DIRECTED
     Route: 048
  2. ZELAPAR [Suspect]
     Active Substance: SELEGILINE HYDROCHLORIDE
     Indication: Product use in unapproved indication

REACTIONS (4)
  - Suicidal ideation [Unknown]
  - Product availability issue [Unknown]
  - Product use in unapproved indication [Unknown]
  - Drug ineffective for unapproved indication [Unknown]
